FAERS Safety Report 18913872 (Version 1)
Quarter: 2021Q1

REPORT INFORMATION
  Report Type: Spontaneous
  Country: BE (occurrence: BE)
  Receive Date: 20210219
  Receipt Date: 20210219
  Transmission Date: 20210420
  Serious: Yes (Death, Life-Threatening, Hospitalization, Other)
  Sender: FDA-Public Use
  Company Number: BE-ACCORD-217238

PATIENT
  Age: 43 Year
  Sex: Male

DRUGS (1)
  1. CISPLATIN. [Suspect]
     Active Substance: CISPLATIN
     Indication: SQUAMOUS CELL CARCINOMA
     Route: 042

REACTIONS (15)
  - Neutropenia [Recovered/Resolved]
  - Pulmonary alveolar haemorrhage [Fatal]
  - Hyperbilirubinaemia [Fatal]
  - Stomatitis [Fatal]
  - Thrombocytopenia [Fatal]
  - Necrotising colitis [Fatal]
  - End stage renal disease [Fatal]
  - Bone marrow disorder [Fatal]
  - Ileus [Fatal]
  - Enteritis [Fatal]
  - Multiple organ dysfunction syndrome [Fatal]
  - Anaemia [Fatal]
  - Diarrhoea [Fatal]
  - Pancytopenia [Fatal]
  - Acute respiratory distress syndrome [Fatal]
